FAERS Safety Report 10304766 (Version 1)
Quarter: 2014Q3

REPORT INFORMATION
  Report Type: Spontaneous
  Country: US (occurrence: None)
  Receive Date: 20140710
  Receipt Date: 20140710
  Transmission Date: 20150326
  Serious: Yes (Hospitalization)
  Sender: FDA-Public Use
  Company Number: SYM-2014-22869

PATIENT
  Age: 63 Year
  Sex: Male
  Weight: 68.04 kg

DRUGS (2)
  1. XENAZINE [Suspect]
     Active Substance: TETRABENAZINE
     Indication: DYSKINESIA
     Route: 048
     Dates: start: 201405, end: 201405
  2. PROZAC [Suspect]
     Active Substance: FLUOXETINE HYDROCHLORIDE
     Indication: PRODUCT USED FOR UNKNOWN INDICATION

REACTIONS (8)
  - Constipation [None]
  - Vomiting [None]
  - Retching [None]
  - Urine output decreased [None]
  - Abdominal pain upper [None]
  - Drug interaction [None]
  - Off label use [None]
  - Pyrexia [None]

NARRATIVE: CASE EVENT DATE: 2014
